FAERS Safety Report 15317416 (Version 2)
Quarter: 2018Q3

REPORT INFORMATION
  Report Type: Spontaneous
  Country: JP (occurrence: JP)
  Receive Date: 20180824
  Receipt Date: 20180920
  Transmission Date: 20181010
  Serious: Yes (Death, Other)
  Sender: FDA-Public Use
  Company Number: JP-BAYER-2018-157947

PATIENT
  Age: 80 Year
  Sex: Male

DRUGS (1)
  1. STIVARGA [Suspect]
     Active Substance: REGORAFENIB
     Indication: COLON CANCER
     Dosage: DAILY DOSE 80 MG, ADMINISTERED 3WEEKS ON/ 1WEEK OFF
     Route: 048

REACTIONS (2)
  - Death [Fatal]
  - Colon cancer [None]

NARRATIVE: CASE EVENT DATE: 20180818
